FAERS Safety Report 8145319-6 (Version None)
Quarter: 2012Q1

REPORT INFORMATION
  Report Type: 
  Country: None (occurrence: None)
  Receive Date: 20120217
  Receipt Date: 20120210
  Transmission Date: 20120608
  Serious: Yes (Hospitalization, Other)
  Sender: FDA-Public Use
  Company Number: PHHY2011US38510

PATIENT
  Sex: Male
  Weight: 99.773 kg

DRUGS (25)
  1. ATENOLOL [Concomitant]
     Dosage: 1 DF, QD
     Route: 048
     Dates: start: 20060914
  2. PRILOSEC [Concomitant]
     Dosage: 20 MG, PRN
     Dates: start: 20090928
  3. GILENYA [Suspect]
     Indication: MULTIPLE SCLEROSIS
     Dosage: 0.5 MG, QD
     Route: 048
     Dates: start: 20110201
  4. ALBUTEROL [Concomitant]
     Dosage: 90 UG, 1-2 PUFFS PRN
     Dates: start: 20060125
  5. LEVOTHROID [Concomitant]
     Dosage: 1 DF, QD
     Route: 048
     Dates: start: 20100524
  6. SPIRONOLACTONE [Concomitant]
     Dosage: 12.5 MG, BID
     Dates: start: 20080205
  7. FLUOXETINE [Concomitant]
     Dosage: 40 MG, EVERY DAY
     Dates: start: 20080512
  8. VITAMIN D [Concomitant]
     Dosage: UNK OT, EVERY DAY
     Dates: start: 20080826
  9. FLONASE [Concomitant]
     Dosage: UNK OT, AS DIRECTED
     Dates: start: 20110414
  10. GEODON [Concomitant]
     Indication: DYSTHYMIC DISORDER
     Dosage: 1 DF, EVERY DAY
     Route: 048
     Dates: start: 20100223
  11. FLOMAX [Concomitant]
     Dosage: UNK UKN, UNK
  12. LISINOPRIL [Concomitant]
     Dosage: 1 DF, QD
     Route: 048
     Dates: start: 20060914
  13. ASPIRIN [Concomitant]
     Dosage: 1 DF, QD
     Route: 048
     Dates: start: 20060914
  14. POTASSIUM CHLORIDE [Concomitant]
     Dosage: 1 DF, BID
     Route: 048
  15. POTASSIUM CHLORIDE W/SODIUM CHLORIDE [Concomitant]
     Dosage: 20-0.45 MEQ/L
     Dates: start: 20080205
  16. TRAZODONE HYDROCHLORIDE [Concomitant]
     Indication: INSOMNIA
     Dosage: 50-100 MG, QHS
     Route: 048
  17. BACLOFEN [Concomitant]
     Dosage: 1 DF, QHS
     Route: 048
     Dates: start: 20090507
  18. SYNTHROID [Concomitant]
     Dosage: 1 DF, QD
     Route: 048
     Dates: start: 20021025
  19. CIPROFLOXACIN [Concomitant]
     Dosage: UNK UKN, UNK
  20. CEPHALEXIN [Concomitant]
     Dosage: 1 DF, QD
     Route: 048
     Dates: start: 20090928
  21. OXYBUTYNIN CHLORIDE [Concomitant]
     Dosage: 2.5 MG, BID
     Route: 048
     Dates: start: 20100524
  22. ALENDRONATE SODIUM [Concomitant]
     Dosage: 70 MG, QW
     Route: 048
  23. HYDROCHLOROTHIAZIDE [Concomitant]
     Indication: BLOOD PRESSURE
     Dosage: 1 DF, QD
     Route: 048
     Dates: start: 20090928
  24. AMBIEN [Concomitant]
     Dosage: 5 MG, QHS
     Dates: start: 20080821
  25. COLACE [Concomitant]
     Dosage: 100 MG, BID
     Route: 048
     Dates: start: 20101229

REACTIONS (17)
  - CENTRAL NERVOUS SYSTEM LESION [None]
  - INCORRECT DOSE ADMINISTERED [None]
  - MUSCULAR WEAKNESS [None]
  - CONSTIPATION [None]
  - HYPOTHYROIDISM [None]
  - NAUSEA [None]
  - GASTROOESOPHAGEAL REFLUX DISEASE [None]
  - SYNCOPE [None]
  - LOSS OF CONSCIOUSNESS [None]
  - DIZZINESS [None]
  - ATELECTASIS [None]
  - BLOOD PRESSURE SYSTOLIC DECREASED [None]
  - HEART RATE DECREASED [None]
  - BRONCHIAL HYPERREACTIVITY [None]
  - VERTIGO [None]
  - CHRONIC SINUSITIS [None]
  - PARANASAL SINUS MUCOSAL HYPERTROPHY [None]
